FAERS Safety Report 5071801-4 (Version None)
Quarter: 2006Q3

REPORT INFORMATION
  Report Type: 
  Country: None (occurrence: None)
  Receive Date: 20060801
  Receipt Date: 20060718
  Transmission Date: 20061208
  Serious: Yes (Hospitalization)
  Sender: FDA-Public Use
  Company Number: CERZ-11283

PATIENT
  Age: 33 Year
  Sex: Male
  Weight: 82.1 kg

DRUGS (1)
  1. CEREZYME [Suspect]
     Indication: GAUCHER'S DISEASE
     Dosage: 26.8 U/KG Q2WKS IV
     Route: 042

REACTIONS (2)
  - ABASIA [None]
  - ARTHROPATHY [None]
